FAERS Safety Report 5173830-9 (Version None)
Quarter: 2006Q4

REPORT INFORMATION
  Report Type: 
  Country: None (occurrence: None)
  Receive Date: 20061214
  Receipt Date: 20061208
  Transmission Date: 20070319
  Serious: Yes (Other)
  Sender: FDA-Public Use
  Company Number: JP-JPN-A200605116

PATIENT
  Age: 21 Year
  Sex: Female

DRUGS (2)
  1. PAXIL [Suspect]
     Indication: DEPRESSION
     Route: 048
  2. SOLANAX [Concomitant]
     Dosage: 34MG SEE DOSAGE TEXT
     Route: 048

REACTIONS (6)
  - CYANOSIS [None]
  - DIZZINESS [None]
  - FEELING ABNORMAL [None]
  - OVERDOSE [None]
  - PALLOR [None]
  - SOMNOLENCE [None]
